FAERS Safety Report 23663149 (Version 1)
Quarter: 2024Q1

REPORT INFORMATION
  Report Type: Other
  Country: GB (occurrence: GB)
  Receive Date: 20240322
  Receipt Date: 20240322
  Transmission Date: 20240410
  Serious: No
  Sender: FDA-Public Use
  Company Number: BE-PFIZER INC-2018304856

PATIENT
  Age: 52 Year
  Sex: Female

DRUGS (7)
  1. CAPECITABINE [Suspect]
     Active Substance: CAPECITABINE
     Indication: Ovarian cancer
     Dosage: UNK?MOST RECENT DOSE ON /MAR/2003
     Route: 065
     Dates: start: 200210
  2. CARBOPLATIN [Concomitant]
     Active Substance: CARBOPLATIN
     Indication: Ovarian cancer
     Dosage: UNK?MOST RECENT DOSE IN MAR/2001
     Route: 065
     Dates: start: 200011
  3. CARBOPLATIN [Concomitant]
     Active Substance: CARBOPLATIN
     Dosage: UNK
     Route: 065
     Dates: start: 200210, end: 200303
  4. EPIRUBICIN HYDROCHLORIDE [Concomitant]
     Active Substance: EPIRUBICIN HYDROCHLORIDE
     Indication: Ovarian cancer
     Dosage: UNK?MOST RECENT DOSE IN /MAR/2003
     Route: 065
     Dates: start: 200210
  5. PLEVITREXED [Concomitant]
     Active Substance: PLEVITREXED
     Indication: Ovarian cancer
     Dosage: UNK?MOST RECENT DOSE IN /MAR/2001
     Route: 065
     Dates: start: 200011
  6. PACLITAXEL [Concomitant]
     Active Substance: PACLITAXEL
     Indication: Ovarian cancer
     Dosage: UNK?MOST RECENT DOSE ON /JUN/1997
     Route: 065
     Dates: start: 199702
  7. CISPLATIN [Concomitant]
     Active Substance: CISPLATIN
     Indication: Ovarian cancer
     Dosage: UNK?MOST RECENT DOSE IN /JUN/1997
     Route: 065
     Dates: start: 199702

REACTIONS (2)
  - Off label use [Unknown]
  - No adverse event [Unknown]

NARRATIVE: CASE EVENT DATE: 20021001
